FAERS Safety Report 23743334 (Version 1)
Quarter: 2024Q2

REPORT INFORMATION
  Report Type: Spontaneous
  Country: US (occurrence: None)
  Receive Date: 20240413
  Receipt Date: 20240413
  Transmission Date: 20240716
  Serious: No
  Sender: FDA-Public Use
  Company Number: None

PATIENT
  Age: 55 Year
  Sex: Female
  Weight: 51.75 kg

DRUGS (1)
  1. CIPROFLOXACIN [Suspect]
     Active Substance: CIPROFLOXACIN
     Dates: start: 20240115, end: 20240119

REACTIONS (7)
  - Bursitis [None]
  - Inflammation [None]
  - Tendonitis [None]
  - Mobility decreased [None]
  - Tendon disorder [None]
  - Osteoarthritis [None]
  - Ligament rupture [None]

NARRATIVE: CASE EVENT DATE: 20240118
